FAERS Safety Report 7627351-1 (Version None)
Quarter: 2011Q3

REPORT INFORMATION
  Report Type: 
  Country: None (occurrence: None)
  Receive Date: 20110721
  Receipt Date: 20110711
  Transmission Date: 20111222
  Serious: Yes (Hospitalization)
  Sender: FDA-Public Use
  Company Number: US-ELI_LILLY_AND_COMPANY-US201107004260

PATIENT
  Sex: Female

DRUGS (17)
  1. ENSURE                             /06184901/ [Concomitant]
     Dosage: UNK, PRN
  2. LEVAQUIN [Concomitant]
     Dosage: UNK, QD
  3. ESTROTEST [Concomitant]
     Dosage: UNK, QD
  4. VITAMIN B-12 [Concomitant]
     Dosage: 1000 UG, MONTHLY (1/M)
  5. BENEFIBER [Concomitant]
     Indication: CONSTIPATION
  6. MUCINEX [Concomitant]
     Dosage: UNK, BID
  7. CALCIUM CARBONATE [Concomitant]
     Dosage: UNK UNK, QD
  8. CALCIFEROL [Concomitant]
     Dosage: 50000 MG, WEEKLY (1/W)
  9. DURAGESIC-100 [Concomitant]
     Dosage: 75 UG, UNK
  10. ROBAXIN [Concomitant]
     Dosage: 1000 MG, TID
  11. PROAIR HFA [Concomitant]
     Dosage: UNK, 4/W
  12. FORTEO [Suspect]
     Indication: OSTEOPOROSIS
     Dosage: 20 UG, QD
  13. ROBAXIN [Concomitant]
     Dosage: 500 MG, TID
  14. LIDODERM [Concomitant]
  15. NORCO [Concomitant]
     Dosage: UNK, TID
  16. SENOKOT [Concomitant]
     Indication: CONSTIPATION
  17. FAMOTIDINE [Concomitant]
     Dosage: UNK, QD

REACTIONS (3)
  - DYSPNOEA [None]
  - BLOOD POTASSIUM DECREASED [None]
  - BRONCHITIS [None]
